FAERS Safety Report 21876109 (Version 1)
Quarter: 2023Q1

REPORT INFORMATION
  Report Type: Report from Study
  Country: CA (occurrence: CA)
  Receive Date: 20230118
  Receipt Date: 20230118
  Transmission Date: 20230418
  Serious: Yes (Hospitalization)
  Sender: FDA-Public Use
  Company Number: CA-ABBVIE-4273553

PATIENT
  Sex: Male

DRUGS (1)
  1. SKYRIZI [Suspect]
     Active Substance: RISANKIZUMAB-RZAA
     Indication: Psoriasis
     Route: 058
     Dates: start: 20211101

REACTIONS (4)
  - Rib fracture [Unknown]
  - Fall [Unknown]
  - Unevaluable event [Unknown]
  - Tooth fracture [Unknown]

NARRATIVE: CASE EVENT DATE: 20220101
